FAERS Safety Report 10209402 (Version 1)
Quarter: 2014Q2

REPORT INFORMATION
  Report Type: Spontaneous
  Country: US (occurrence: TN)
  Receive Date: 20140531
  Receipt Date: 20140531
  Transmission Date: 20141212
  Serious: Yes (Death)
  Sender: FDA-Public Use
  Company Number: 2014SP001857

PATIENT
  Age: 41 Year
  Sex: Female

DRUGS (3)
  1. CISPLATIN [Suspect]
     Indication: LUNG ADENOCARCINOMA
  2. PEMETREXED DISODIUM [Concomitant]
  3. GEMCITABINE HYDROCHLORIDE [Concomitant]

REACTIONS (4)
  - Disease progression [Fatal]
  - Lung adenocarcinoma [Fatal]
  - Nausea [Unknown]
  - Vomiting [Unknown]
